FAERS Safety Report 6174870-3 (Version None)
Quarter: 2009Q2

REPORT INFORMATION
  Report Type: 
  Country: None (occurrence: None)
  Receive Date: 20090430
  Receipt Date: 20081208
  Transmission Date: 20091009
  Serious: No
  Sender: FDA-Public Use
  Company Number: US-ASTRAZENECA-2008UW27235

PATIENT
  Age: 59 Year
  Sex: Female
  Weight: 53.5 kg

DRUGS (2)
  1. NEXIUM [Suspect]
     Indication: GASTROOESOPHAGEAL REFLUX DISEASE
     Route: 048
     Dates: start: 20081203
  2. CLONAZEPAM [Concomitant]

REACTIONS (3)
  - CHILLS [None]
  - DRY MOUTH [None]
  - HOT FLUSH [None]
